FAERS Safety Report 8056344-8 (Version None)
Quarter: 2011Q4

REPORT INFORMATION
  Report Type: 
  Country: None (occurrence: None)
  Receive Date: 20111220
  Receipt Date: 20110907
  Transmission Date: 20120403
  Serious: Yes (Hospitalization)
  Sender: FDA-Public Use
  Company Number: PHEH2011US03858

PATIENT
  Age: 39 Year
  Sex: Male

DRUGS (1)
  1. MYFORTIC [Suspect]

REACTIONS (1)
  - OESOPHAGITIS [None]
